FAERS Safety Report 25853090 (Version 1)
Quarter: 2025Q3

REPORT INFORMATION
  Report Type: Spontaneous
  Country: CA (occurrence: CA)
  Receive Date: 20250926
  Receipt Date: 20250926
  Transmission Date: 20251020
  Serious: Yes (Other)
  Sender: MERCK SHARP & DOHME LLC
  Company Number: CA-009507513-2320418

PATIENT
  Age: 35 Year
  Sex: Female
  Weight: 110.59 kg

DRUGS (2)
  1. M-M-R II [Suspect]
     Active Substance: MEASLES VIRUS STRAIN ENDERS^ ATTENUATED EDMONSTON LIVE ANTIGEN\MUMPS VIRUS STRAIN B LEVEL JERYL LYNN
     Route: 065
     Dates: start: 20250730
  2. STERILE DILUENT (WATER) [Suspect]
     Active Substance: WATER
     Route: 065

REACTIONS (8)
  - Panniculitis [Recovering/Resolving]
  - Fatigue [Recovering/Resolving]
  - Headache [Recovering/Resolving]
  - Tremor [Unknown]
  - Diarrhoea [Not Recovered/Not Resolved]
  - Erythema [Recovering/Resolving]
  - Nausea [Recovering/Resolving]
  - Decreased appetite [Recovering/Resolving]

NARRATIVE: CASE EVENT DATE: 20250730
